FAERS Safety Report 20169058 (Version 2)
Quarter: 2021Q4

REPORT INFORMATION
  Report Type: Spontaneous
  Country: US (occurrence: US)
  Receive Date: 20211210
  Receipt Date: 20211222
  Transmission Date: 20220303
  Serious: Yes (Disabling, Other)
  Sender: FDA-Public Use
  Company Number: US-REGENERON PHARMACEUTICALS, INC.-2021-113935

PATIENT

DRUGS (17)
  1. EYLEA [Suspect]
     Active Substance: AFLIBERCEPT
     Indication: Neovascular age-related macular degeneration
     Dosage: 2 MG 0.05CC, Q4W, INTO LEFT EYE
     Route: 031
     Dates: start: 202109
  2. EYLEA [Suspect]
     Active Substance: AFLIBERCEPT
     Indication: Choroidal neovascularisation
  3. CILOXAN [Concomitant]
     Active Substance: CIPROFLOXACIN HYDROCHLORIDE
     Indication: Preoperative care
  4. BETADINE                           /00080001/ [Concomitant]
     Indication: Preoperative care
  5. LIDOCAINE [Concomitant]
     Active Substance: LIDOCAINE
     Indication: Preoperative care
     Route: 061
  6. OCUVITE                            /01053801/ [Concomitant]
     Indication: Product used for unknown indication
     Dosage: 1 DF, QD (200MCG-15MCG-150MCG TABLET)
     Route: 048
  7. ALLOPURINOL [Concomitant]
     Active Substance: ALLOPURINOL
     Indication: Product used for unknown indication
     Dosage: 1 TAB PO QD
     Route: 048
  8. ASPIRIN                            /00002701/ [Concomitant]
     Indication: Product used for unknown indication
     Dosage: 1 TAB PO QD
     Route: 048
  9. BENICAR [Concomitant]
     Active Substance: OLMESARTAN MEDOXOMIL
     Indication: Product used for unknown indication
     Dosage: 1 TAB PO BID
     Route: 048
  10. CINNAMON                           /01647501/ [Concomitant]
     Indication: Product used for unknown indication
     Dosage: 2 TAB PO BID
     Route: 048
  11. CRESTOR [Concomitant]
     Active Substance: ROSUVASTATIN CALCIUM
     Indication: Product used for unknown indication
     Dosage: 1 TAB PO QD
     Route: 048
  12. METOPROLOL TARTRATE [Concomitant]
     Active Substance: METOPROLOL TARTRATE
     Indication: Product used for unknown indication
     Dosage: 1 TAB PO BID
     Route: 048
  13. NIASPAN [Concomitant]
     Active Substance: NIACIN
     Indication: Product used for unknown indication
     Dosage: 1 TAB PO QD
     Route: 048
  14. OMEGA-3 FATTY ACIDS [Concomitant]
     Active Substance: OMEGA-3 FATTY ACIDS
     Indication: Product used for unknown indication
     Dosage: UNK (OMEGA3:1000MG -DHA-EPA-OTHER; OMEGA FISH OIL: 1400MG CAPSULE, DELAYED RELEASE)
  15. TRICOR                             /00090101/ [Concomitant]
     Indication: Product used for unknown indication
     Dosage: 1 TAB PO QD
     Route: 048
  16. VITAMIN D3 [Concomitant]
     Active Substance: CHOLECALCIFEROL
     Indication: Product used for unknown indication
     Dosage: 1 TAB PO QD (1000 UNITS CAPSULE)
     Route: 048
  17. VITAMIN K2                         /00357701/ [Concomitant]
     Indication: Product used for unknown indication
     Dosage: UNK

REACTIONS (2)
  - Blindness [Recovered/Resolved]
  - Vitreous floaters [Not Recovered/Not Resolved]

NARRATIVE: CASE EVENT DATE: 20210101
